FAERS Safety Report 7532711-3 (Version None)
Quarter: 2011Q2

REPORT INFORMATION
  Report Type: 
  Country: None (occurrence: None)
  Receive Date: 20110608
  Receipt Date: 20110125
  Transmission Date: 20111010
  Serious: Yes (Hospitalization)
  Sender: FDA-Public Use
  Company Number: A0910427A

PATIENT
  Age: 62 Year
  Sex: Male

DRUGS (1)
  1. ROSIGLITAZONE MALEATE [Suspect]
     Indication: DIABETES MELLITUS
     Dosage: 8MG PER DAY
     Route: 048
     Dates: start: 20070101, end: 20100727

REACTIONS (4)
  - CARDIAC FAILURE CONGESTIVE [None]
  - ARTERIAL OCCLUSIVE DISEASE [None]
  - CARDIAC OPERATION [None]
  - MYOCARDIAL INFARCTION [None]
